FAERS Safety Report 4835600-8 (Version None)
Quarter: 2005Q4

REPORT INFORMATION
  Report Type: 
  Country: None (occurrence: None)
  Receive Date: 20051121
  Receipt Date: 20051107
  Transmission Date: 20060501
  Serious: Yes (Disabling)
  Sender: FDA-Public Use
  Company Number: 2005153738

PATIENT
  Sex: 0

DRUGS (1)
  1. CYTOTEC [Suspect]
     Indication: INDUCED LABOUR
     Dosage: (100 MCG), PLACENTAL
     Route: 064
     Dates: start: 20030101

REACTIONS (4)
  - DRUG EXPOSURE DURING PREGNANCY [None]
  - ENCEPHALOPATHY NEONATAL [None]
  - NEONATAL ASPHYXIA [None]
  - NEONATAL HYPOXIA [None]
